FAERS Safety Report 15448193 (Version 5)
Quarter: 2020Q4

REPORT INFORMATION
  Report Type: Report from Study
  Country: GT (occurrence: GT)
  Receive Date: 20180928
  Receipt Date: 20201015
  Transmission Date: 20210113
  Serious: Yes (Other)
  Sender: FDA-Public Use
  Company Number: PHHY2018GT068724

PATIENT
  Sex: Male

DRUGS (2)
  1. GILENYA [Suspect]
     Active Substance: FINGOLIMOD HYDROCHLORIDE
     Dosage: 0.5 MG, QD
     Route: 048
     Dates: end: 20180920
  2. GILENYA [Suspect]
     Active Substance: FINGOLIMOD HYDROCHLORIDE
     Indication: MULTIPLE SCLEROSIS
     Dosage: 0.5 MG, QD
     Route: 048
     Dates: start: 20180920

REACTIONS (19)
  - Movement disorder [Unknown]
  - Haematocrit decreased [Unknown]
  - Anaemia [Unknown]
  - Urinary tract infection [Unknown]
  - Peripheral coldness [Unknown]
  - Underweight [Unknown]
  - Poor peripheral circulation [Unknown]
  - Red blood cell count decreased [Unknown]
  - Fear [Unknown]
  - Discomfort [Unknown]
  - White blood cell count decreased [Unknown]
  - Neuropathy peripheral [Unknown]
  - Immunodeficiency [Unknown]
  - Insomnia [Unknown]
  - Peripheral venous disease [Unknown]
  - Pain in extremity [Unknown]
  - Glucose tolerance impaired [Unknown]
  - Haemoglobin decreased [Unknown]
  - Diabetes mellitus [Unknown]
